FAERS Safety Report 5420842-3 (Version None)
Quarter: 2007Q3

REPORT INFORMATION
  Report Type: 
  Country: None (occurrence: None)
  Receive Date: 20070816
  Receipt Date: 20070809
  Transmission Date: 20080115
  Serious: Yes (Hospitalization)
  Sender: FDA-Public Use
  Company Number: 2007-03739

PATIENT
  Age: 91 Year
  Sex: Female

DRUGS (4)
  1. ISONIAZID [Suspect]
     Indication: JOINT TUBERCULOSIS
     Dosage: 250 MG, DAILY, ORAL, 200 MG, DAILY, ORAL
     Route: 048
  2. PYRAZINAMIDE [Concomitant]
  3. RIFAMPICIN [Concomitant]
  4. PYRIDOXINE (PYRIDOXINE) [Concomitant]

REACTIONS (1)
  - PANCREATITIS ACUTE [None]
